FAERS Safety Report 7592915-0 (Version None)
Quarter: 2011Q3

REPORT INFORMATION
  Report Type: 
  Country: None (occurrence: None)
  Receive Date: 20110706
  Receipt Date: 20110628
  Transmission Date: 20111222
  Serious: Yes (Other)
  Sender: FDA-Public Use
  Company Number: US-BAYER-2011-056056

PATIENT
  Age: 65 Year
  Sex: Male

DRUGS (1)
  1. NEXAVAR [Suspect]
     Indication: HEPATIC NEOPLASM MALIGNANT
     Dosage: 400MG
     Route: 048
     Dates: start: 20110621

REACTIONS (5)
  - VOMITING [None]
  - FATIGUE [None]
  - DEAFNESS UNILATERAL [None]
  - DIZZINESS [None]
  - DISORIENTATION [None]
